FAERS Safety Report 17190769 (Version 1)
Quarter: 2019Q4

REPORT INFORMATION
  Report Type: Other
  Country: CA (occurrence: CA)
  Receive Date: 20191223
  Receipt Date: 20191223
  Transmission Date: 20200122
  Serious: Yes (Other)
  Sender: FDA-Public Use
  Company Number: CA-TARO PHARMACEUTICALS USA.,INC-2019SUN00699

PATIENT
  Age: 57 Year
  Sex: Male

DRUGS (1)
  1. LYDERM [FLUOCINONIDE] [Suspect]
     Active Substance: FLUOCINONIDE
     Indication: PRODUCT USED FOR UNKNOWN INDICATION
     Dosage: BID
     Route: 061

REACTIONS (2)
  - Anxiety [Recovering/Resolving]
  - Nervousness [Recovering/Resolving]
